FAERS Safety Report 18265745 (Version 2)
Quarter: 2020Q4

REPORT INFORMATION
  Report Type: Spontaneous
  Country: JP (occurrence: JP)
  Receive Date: 20200914
  Receipt Date: 20201019
  Transmission Date: 20210113
  Serious: Yes (Other)
  Sender: FDA-Public Use
  Company Number: JP-ROCHE-2676956

PATIENT
  Age: 64 Year
  Sex: Male

DRUGS (43)
  1. ALVESCO [Concomitant]
     Active Substance: CICLESONIDE
     Route: 055
     Dates: start: 20200515, end: 20200608
  2. METHYLPREDNISOLONE. [Concomitant]
     Active Substance: METHYLPREDNISOLONE
     Dosage: DOSE INTERVAL UNCERTAINTY
     Route: 065
     Dates: start: 20200421, end: 20200422
  3. ATOVAQUONE. [Concomitant]
     Active Substance: ATOVAQUONE
     Indication: COVID-19
     Route: 065
     Dates: start: 20200510, end: 20200514
  4. TAKEPRON [Concomitant]
     Active Substance: LANSOPRAZOLE
     Route: 042
     Dates: start: 20200509, end: 20200519
  5. ACTEMRA [Suspect]
     Active Substance: TOCILIZUMAB
     Indication: COVID-19 PNEUMONIA
     Dosage: THREE TIME 1200 IN TOTAL AND DOSE INTERVAL UNCERTAINTY
     Route: 041
     Dates: start: 20200421, end: 20200422
  6. ALVESCO [Concomitant]
     Active Substance: CICLESONIDE
     Indication: COVID-19
     Route: 055
     Dates: start: 20200417, end: 20200419
  7. FUTHAN [Concomitant]
     Active Substance: NAFAMOSTAT MESYLATE
     Indication: COVID-19
     Route: 065
     Dates: start: 20200417, end: 20200503
  8. AVIGAN [Concomitant]
     Active Substance: FAVIPIRAVIR
     Indication: COVID-19
     Route: 065
     Dates: start: 20200417, end: 20200417
  9. PIPERACILLIN SODIUM;TAZOBACTAM SODIUM [Concomitant]
     Active Substance: PIPERACILLIN SODIUM\TAZOBACTAM SODIUM
     Indication: COVID-19
     Route: 065
     Dates: start: 20200417, end: 20200421
  10. METHYLPREDNISOLONE. [Concomitant]
     Active Substance: METHYLPREDNISOLONE
     Indication: COVID-19
     Dosage: DOSE INTERVAL UNCERTAINTY
     Route: 065
     Dates: start: 20200417, end: 20200420
  11. METHYLPREDNISOLONE. [Concomitant]
     Active Substance: METHYLPREDNISOLONE
     Dosage: DOSE INTERVAL UNCERTAINTY
     Route: 065
     Dates: start: 20200430, end: 20200501
  12. METHYLPREDNISOLONE. [Concomitant]
     Active Substance: METHYLPREDNISOLONE
     Dosage: DOSE INTERVAL UNCERTAINTY
     Route: 065
     Dates: start: 20200509
  13. METHYLPREDNISOLONE. [Concomitant]
     Active Substance: METHYLPREDNISOLONE
     Dosage: DOSE INTERVAL UNCERTAINTY
     Route: 065
     Dates: start: 20200510
  14. METHYLPREDNISOLONE. [Concomitant]
     Active Substance: METHYLPREDNISOLONE
     Dosage: DOSE INTERVAL UNCERTAINTY
     Route: 065
     Dates: start: 20200516
  15. HEPARIN CALCIUM [Concomitant]
     Active Substance: HEPARIN CALCIUM
     Indication: COVID-19
     Dosage: DOSAGE IS UNCERTAIN.
     Route: 065
     Dates: start: 20200419, end: 20200608
  16. ZITHROMAC [Concomitant]
     Active Substance: AZITHROMYCIN DIHYDRATE
     Indication: COVID-19
     Route: 041
     Dates: start: 20200417, end: 20200421
  17. PLAQUENIL [Concomitant]
     Active Substance: HYDROXYCHLOROQUINE SULFATE
     Indication: COVID-19
     Route: 065
     Dates: start: 20200417, end: 20200417
  18. METHYLPREDNISOLONE. [Concomitant]
     Active Substance: METHYLPREDNISOLONE
     Dosage: DOSE INTERVAL UNCERTAINTY
     Route: 065
     Dates: start: 20200519
  19. METHYLPREDNISOLONE. [Concomitant]
     Active Substance: METHYLPREDNISOLONE
     Dosage: DOSE INTERVAL UNCERTAINTY
     Route: 065
     Dates: start: 20200522
  20. LANSOPRAZOLE. [Concomitant]
     Active Substance: LANSOPRAZOLE
     Indication: COVID-19
     Dosage: DOSE INTERVAL UNCERTAINTY
     Route: 048
     Dates: start: 20200520
  21. FUTHAN [Concomitant]
     Active Substance: NAFAMOSTAT MESYLATE
     Route: 065
     Dates: start: 20200510, end: 20200517
  22. AVIGAN [Concomitant]
     Active Substance: FAVIPIRAVIR
     Route: 065
     Dates: start: 20200509, end: 20200510
  23. METHYLPREDNISOLONE. [Concomitant]
     Active Substance: METHYLPREDNISOLONE
     Dosage: DOSE INTERVAL UNCERTAINTY
     Route: 065
     Dates: start: 20200423, end: 20200425
  24. METHYLPREDNISOLONE. [Concomitant]
     Active Substance: METHYLPREDNISOLONE
     Dosage: DOSE INTERVAL UNCERTAINTY
     Route: 065
     Dates: start: 20200426, end: 20200427
  25. METHYLPREDNISOLONE. [Concomitant]
     Active Substance: METHYLPREDNISOLONE
     Dosage: DOSE INTERVAL UNCERTAINTY
     Route: 065
     Dates: start: 20200513
  26. METHYLPREDNISOLONE. [Concomitant]
     Active Substance: METHYLPREDNISOLONE
     Route: 065
     Dates: start: 20200601, end: 20200605
  27. TAKEPRON [Concomitant]
     Active Substance: LANSOPRAZOLE
     Indication: COVID-19
     Route: 042
     Dates: start: 20200424, end: 20200428
  28. ACTEMRA [Suspect]
     Active Substance: TOCILIZUMAB
     Route: 041
     Dates: start: 20200509, end: 20200509
  29. ALVESCO [Concomitant]
     Active Substance: CICLESONIDE
     Route: 055
     Dates: start: 20200424, end: 20200510
  30. DORIPENEM MONOHYDRATE [Concomitant]
     Active Substance: DORIPENEM MONOHYDRATE
     Indication: COVID-19
     Route: 065
     Dates: start: 20200422, end: 20200430
  31. CAMOSTAT MESILATE [Concomitant]
     Active Substance: CAMOSTAT MESYLATE
     Indication: COVID-19
     Route: 065
     Dates: start: 20200503, end: 20200508
  32. FUTHAN [Concomitant]
     Active Substance: NAFAMOSTAT MESYLATE
     Route: 065
     Dates: start: 20200518, end: 20200604
  33. METHYLPREDNISOLONE. [Concomitant]
     Active Substance: METHYLPREDNISOLONE
     Dosage: DOSE INTERVAL UNCERTAINTY
     Route: 065
     Dates: start: 20200527
  34. DORIPENEM MONOHYDRATE [Concomitant]
     Active Substance: DORIPENEM MONOHYDRATE
     Route: 065
     Dates: start: 20200509, end: 20200518
  35. VENILON [Concomitant]
     Active Substance: HUMAN IMMUNOGLOBULIN G
     Indication: COVID-19
     Route: 065
     Dates: start: 20200510, end: 20200514
  36. DENOSINE (JAPAN) [Concomitant]
     Active Substance: GANCICLOVIR
     Indication: COVID-19
     Route: 065
     Dates: start: 20200510, end: 20200513
  37. ATOVAQUONE. [Concomitant]
     Active Substance: ATOVAQUONE
     Route: 065
     Dates: start: 20200515, end: 20200608
  38. FAMOTIDINE OD [Concomitant]
     Active Substance: FAMOTIDINE
     Indication: COVID-19
     Route: 048
     Dates: start: 20200429, end: 20200508
  39. PLAQUENIL [Concomitant]
     Active Substance: HYDROXYCHLOROQUINE SULFATE
     Route: 065
     Dates: start: 20200418, end: 20200426
  40. AVIGAN [Concomitant]
     Active Substance: FAVIPIRAVIR
     Route: 065
     Dates: start: 20200510, end: 20200614
  41. ELASPOL [Concomitant]
     Active Substance: SIVELESTAT SODIUM
     Indication: COVID-19
     Route: 065
     Dates: start: 20200422, end: 20200428
  42. AVIGAN [Concomitant]
     Active Substance: FAVIPIRAVIR
     Route: 065
     Dates: start: 20200418, end: 20200430
  43. METHYLPREDNISOLONE. [Concomitant]
     Active Substance: METHYLPREDNISOLONE
     Dosage: DOSE INTERVAL UNCERTAINTY
     Route: 065
     Dates: start: 20200428, end: 20200429

REACTIONS (5)
  - Neutrophil count decreased [Recovered/Resolved]
  - Pulmonary artery thrombosis [Unknown]
  - Intentional product use issue [Unknown]
  - Off label use [Unknown]
  - Platelet count decreased [Recovered/Resolved]

NARRATIVE: CASE EVENT DATE: 202005
